FAERS Safety Report 4875191-9 (Version None)
Quarter: 2006Q1

REPORT INFORMATION
  Report Type: 
  Country: None (occurrence: None)
  Receive Date: 20060109
  Receipt Date: 20050128
  Transmission Date: 20060701
  Serious: Yes (Hospitalization, Disabling)
  Sender: FDA-Public Use
  Company Number: US-MERCK-0501USA04520

PATIENT
  Age: 65 Year
  Sex: Female
  Weight: 95 kg

DRUGS (7)
  1. VIOXX [Suspect]
     Indication: BACK PAIN
     Route: 048
     Dates: start: 20030601, end: 20041001
  2. VIOXX [Suspect]
     Route: 048
     Dates: start: 20030601, end: 20041001
  3. DIOVAN [Concomitant]
     Route: 065
  4. DARVON [Concomitant]
     Route: 065
  5. PAPAVERINE HYDROCHLORIDE [Concomitant]
     Route: 065
  6. [THERAPY UNSPECIFIED] [Concomitant]
     Indication: PAIN
     Route: 065
  7. ASPIRIN [Concomitant]
     Route: 065

REACTIONS (4)
  - HYPERTENSION [None]
  - PALPITATIONS [None]
  - SINUSITIS [None]
  - TRANSIENT ISCHAEMIC ATTACK [None]
